FAERS Safety Report 5475109-4 (Version None)
Quarter: 2007Q4

REPORT INFORMATION
  Report Type: 
  Country: None (occurrence: None)
  Receive Date: 20071002
  Receipt Date: 20070927
  Transmission Date: 20080405
  Serious: Yes (Hospitalization)
  Sender: FDA-Public Use
  Company Number: TR-BOEHRINGER INGELHEIM PHARMACEUTICALS, INC.-2007-DE-05826GD

PATIENT
  Age: 46 Year
  Sex: Male

DRUGS (2)
  1. SPIRIVA [Suspect]
     Indication: CHRONIC OBSTRUCTIVE PULMONARY DISEASE
     Route: 047
  2. SPIRIVA [Suspect]

REACTIONS (2)
  - ACCIDENTAL EXPOSURE [None]
  - ANGLE CLOSURE GLAUCOMA [None]
